FAERS Safety Report 19088676 (Version 1)
Quarter: 2021Q2

REPORT INFORMATION
  Report Type: Spontaneous
  Country: CN (occurrence: CN)
  Receive Date: 20210402
  Receipt Date: 20210402
  Transmission Date: 20210717
  Serious: Yes (Other)
  Sender: FDA-Public Use
  Company Number: CN-ROCHE-2797482

PATIENT
  Age: 37 Year
  Sex: Male

DRUGS (23)
  1. CYCLOPHOSPHAMIDE. [Concomitant]
     Active Substance: CYCLOPHOSPHAMIDE
     Indication: NON-HODGKIN^S LYMPHOMA
     Dates: start: 20160729
  2. DEXAMETHASONE. [Concomitant]
     Active Substance: DEXAMETHASONE
  3. CARMUSTINE. [Concomitant]
     Active Substance: CARMUSTINE
     Dates: start: 20160323
  4. CARMUSTINE. [Concomitant]
     Active Substance: CARMUSTINE
     Dates: start: 20160729
  5. VINDESINE [Concomitant]
     Active Substance: VINDESINE
  6. CYTARABINE. [Concomitant]
     Active Substance: CYTARABINE
     Dates: start: 20160323
  7. VINCRISTINE [Concomitant]
     Active Substance: VINCRISTINE
  8. ETOPOSIDE. [Concomitant]
     Active Substance: ETOPOSIDE
     Dates: start: 20160323, end: 20160729
  9. DOXORUBICIN [Concomitant]
     Active Substance: DOXORUBICIN
  10. CISPLATIN. [Concomitant]
     Active Substance: CISPLATIN
  11. CYCLOPHOSPHAMIDE. [Concomitant]
     Active Substance: CYCLOPHOSPHAMIDE
     Dates: start: 20170224
  12. BORTEZOMIB. [Concomitant]
     Active Substance: BORTEZOMIB
  13. METHOTREXATE. [Concomitant]
     Active Substance: METHOTREXATE
  14. RITUXIMAB. [Suspect]
     Active Substance: RITUXIMAB
     Indication: NON-HODGKIN^S LYMPHOMA
     Route: 065
  15. PREDNISONE. [Concomitant]
     Active Substance: PREDNISONE
  16. IFOSFAMIDE. [Concomitant]
     Active Substance: IFOSFAMIDE
  17. MELPHALAN. [Concomitant]
     Active Substance: MELPHALAN
     Dates: start: 20160323
  18. IDARUBICIN [Concomitant]
     Active Substance: IDARUBICIN
  19. IBRUTINIB [Concomitant]
     Active Substance: IBRUTINIB
     Route: 048
  20. VENETOCLAX. [Concomitant]
     Active Substance: VENETOCLAX
     Route: 048
  21. GEMCITABINE. [Concomitant]
     Active Substance: GEMCITABINE
  22. FLUDARABINE [Concomitant]
     Active Substance: FLUDARABINE PHOSPHATE
     Dates: start: 20170224
  23. METHOTREXATE. [Concomitant]
     Active Substance: METHOTREXATE

REACTIONS (6)
  - Pyrexia [Unknown]
  - Platelet count decreased [Unknown]
  - Acute kidney injury [Unknown]
  - Agranulocytosis [Unknown]
  - Pneumonia [Unknown]
  - Cytomegalovirus viraemia [Unknown]
